FAERS Safety Report 6715276-5 (Version None)
Quarter: 2010Q2

REPORT INFORMATION
  Report Type: 
  Country: None (occurrence: None)
  Receive Date: 20100426
  Receipt Date: 20100125
  Transmission Date: 20101027
  Serious: Yes (Hospitalization)
  Sender: FDA-Public Use
  Company Number: 2010BI002678

PATIENT
  Sex: Female
  Weight: 90.7194 kg

DRUGS (1)
  1. TYSABRI [Suspect]
     Indication: CROHN'S DISEASE
     Dosage: ;IV
     Route: 042
     Dates: start: 20080730

REACTIONS (1)
  - CROHN'S DISEASE [None]
